FAERS Safety Report 9162291 (Version 1)
Quarter: 2013Q1

REPORT INFORMATION
  Report Type: Spontaneous
  Country: US (occurrence: None)
  Receive Date: 20130225
  Receipt Date: 20130225
  Transmission Date: 20140127
  Serious: Yes (Other)
  Sender: FDA-Public Use
  Company Number: AUR-APL-2013-01279

PATIENT
  Age: 45 Year
  Sex: Male

DRUGS (3)
  1. SERTRALINE (SERTRALINE) (SERTRALINE) [Suspect]
     Indication: DEPRESSION
  2. CITALOPRAM [Suspect]
  3. OMEPRAZOLE [Concomitant]

REACTIONS (1)
  - Mania [None]
